FAERS Safety Report 6292719-5 (Version None)
Quarter: 2009Q3

REPORT INFORMATION
  Report Type: 
  Country: None (occurrence: None)
  Receive Date: 20090731
  Receipt Date: 20090729
  Transmission Date: 20100115
  Serious: Yes (Other)
  Sender: FDA-Public Use
  Company Number: A0799258A

PATIENT
  Age: 64 Year
  Sex: Female

DRUGS (4)
  1. ARIXTRA [Suspect]
     Indication: DRUG USE FOR UNKNOWN INDICATION
     Dosage: 2MG PER DAY
     Route: 058
  2. ARGATROBAN [Suspect]
     Indication: DRUG USE FOR UNKNOWN INDICATION
     Dosage: 200MCG SEE DOSAGE TEXT
     Route: 042
  3. ORGARAN [Suspect]
     Indication: DRUG USE FOR UNKNOWN INDICATION
     Dosage: 2250UNIT SINGLE DOSE
     Route: 042
  4. FRAGMIN [Concomitant]
     Indication: DRUG USE FOR UNKNOWN INDICATION
     Route: 058

REACTIONS (15)
  - ACTIVATED PARTIAL THROMBOPLASTIN TIME PROLONGED [None]
  - ADRENAL DISORDER [None]
  - ADRENAL HAEMORRHAGE [None]
  - ADRENAL INSUFFICIENCY [None]
  - AMNESIA [None]
  - BLOOD LACTATE DEHYDROGENASE INCREASED [None]
  - CEREBRAL ISCHAEMIA [None]
  - DEEP VEIN THROMBOSIS POSTOPERATIVE [None]
  - DELIRIUM [None]
  - DISORIENTATION [None]
  - DYSARTHRIA [None]
  - HEADACHE [None]
  - HEPARIN-INDUCED THROMBOCYTOPENIA [None]
  - PYREXIA [None]
  - RENAL FAILURE [None]
